FAERS Safety Report 8789600 (Version 1)
Quarter: 2012Q4

REPORT INFORMATION
  Report Type: Spontaneous
  Country: US (occurrence: None)
  Receive Date: 20120910
  Receipt Date: 20120910
  Transmission Date: 20130627
  Serious: No
  Sender: FDA-Public Use
  Company Number: None

PATIENT
  Age: 50 Month
  Sex: Male
  Weight: 74.84 kg

DRUGS (1)
  1. PROPECIA [Suspect]
     Dosage: 1 pill daily po
     Route: 048

REACTIONS (3)
  - Alopecia [None]
  - Pruritus [None]
  - Urticaria [None]
